FAERS Safety Report 7550189-0 (Version None)
Quarter: 2011Q2

REPORT INFORMATION
  Report Type: 
  Country: None (occurrence: None)
  Receive Date: 20110615
  Receipt Date: 20110609
  Transmission Date: 20111010
  Serious: Yes (Other)
  Sender: FDA-Public Use
  Company Number: US-PFIZER INC-2011127115

PATIENT
  Sex: Female
  Weight: 65.76 kg

DRUGS (2)
  1. GABAPENTIN [Suspect]
     Dosage: 300 MG, 3X/DAY
  2. LYRICA [Suspect]
     Indication: NEURALGIA
     Dosage: 75 MG, 2X/DAY
     Route: 048
     Dates: start: 20110301

REACTIONS (2)
  - PALPITATIONS [None]
  - OEDEMA PERIPHERAL [None]
